FAERS Safety Report 14700468 (Version 1)
Quarter: 2018Q1

REPORT INFORMATION
  Report Type: Spontaneous
  Country: US (occurrence: US)
  Receive Date: 20180330
  Receipt Date: 20180330
  Transmission Date: 20180509
  Serious: Yes (Other)
  Sender: FDA-Public Use
  Company Number: US-SA-2018SA087433

PATIENT
  Sex: Female

DRUGS (3)
  1. MULTAQ [Suspect]
     Active Substance: DRONEDARONE
     Indication: VENTRICULAR EXTRASYSTOLES
     Route: 048
  2. DILTIAZEM. [Concomitant]
     Active Substance: DILTIAZEM
  3. MULTAQ [Suspect]
     Active Substance: DRONEDARONE
     Indication: VENTRICULAR EXTRASYSTOLES
     Route: 048

REACTIONS (7)
  - Arrhythmia [Unknown]
  - Nausea [Unknown]
  - Breast cancer [Unknown]
  - Circadian rhythm sleep disorder [Unknown]
  - Treatment noncompliance [Unknown]
  - Somnolence [Unknown]
  - Fatigue [Unknown]
